FAERS Safety Report 8200924-3 (Version None)
Quarter: 2012Q1

REPORT INFORMATION
  Report Type: 
  Country: None (occurrence: None)
  Receive Date: 20120312
  Receipt Date: 20110929
  Transmission Date: 20120608
  Serious: No
  Sender: FDA-Public Use
  Company Number: US-ABBOTT-11P-163-0859883-00

PATIENT
  Sex: Female
  Weight: 75.364 kg

DRUGS (2)
  1. NORETHINDRONE [Concomitant]
     Indication: SUPPLEMENTATION THERAPY
     Dates: start: 20110801
  2. LUPRON DEPOT [Suspect]
     Indication: UTERINE LEIOMYOMA
     Dates: start: 20110818

REACTIONS (1)
  - HOT FLUSH [None]
